FAERS Safety Report 14505199 (Version 1)
Quarter: 2018Q1

REPORT INFORMATION
  Report Type: Spontaneous
  Country: NO (occurrence: NO)
  Receive Date: 20180208
  Receipt Date: 20180208
  Transmission Date: 20180509
  Serious: Yes (Death)
  Sender: FDA-Public Use
  Company Number: NO-ASTRAZENECA-2018SE13225

PATIENT
  Age: 69 Year
  Sex: Female

DRUGS (6)
  1. BRILIQUE [Suspect]
     Active Substance: TICAGRELOR
     Indication: ACUTE MYOCARDIAL INFARCTION
     Route: 048
  2. ACETYLSALICYLIC ACID [Suspect]
     Active Substance: ASPIRIN
     Indication: ACUTE MYOCARDIAL INFARCTION
     Route: 065
  3. ARIXTRA [Suspect]
     Active Substance: FONDAPARINUX SODIUM
     Indication: ACUTE MYOCARDIAL INFARCTION
     Route: 065
  4. ARIXTRA [Suspect]
     Active Substance: FONDAPARINUX SODIUM
     Indication: ACUTE MYOCARDIAL INFARCTION
     Dosage: 2.5 MG IN ACCORDANCE WITH GUIDELINES
     Route: 058
     Dates: start: 20171029, end: 20171030
  5. ACETYLSALICYLIC ACID [Suspect]
     Active Substance: ASPIRIN
     Indication: ACUTE MYOCARDIAL INFARCTION
     Dosage: 300 MG IN ACCORDANCE WITH GUIDELINES
     Route: 065
     Dates: start: 20171029, end: 20171030
  6. BRILIQUE [Suspect]
     Active Substance: TICAGRELOR
     Indication: ACUTE MYOCARDIAL INFARCTION
     Dosage: LOADING DOSE 180 MG, IN ACCORDANCE WITH GUIDELINES
     Route: 048
     Dates: start: 20171029, end: 20171030

REACTIONS (1)
  - Cerebral haemorrhage [Fatal]

NARRATIVE: CASE EVENT DATE: 20171029
